APPROVED DRUG PRODUCT: LEVOFLOXACIN
Active Ingredient: LEVOFLOXACIN
Strength: 250MG
Dosage Form/Route: TABLET;ORAL
Application: A076710 | Product #001 | TE Code: AB
Applicant: DR REDDYS LABORATORIES INC
Approved: Jun 20, 2011 | RLD: No | RS: No | Type: RX